FAERS Safety Report 19925393 (Version 5)
Quarter: 2022Q1

REPORT INFORMATION
  Report Type: Spontaneous
  Country: US (occurrence: US)
  Receive Date: 20211006
  Receipt Date: 20220119
  Transmission Date: 20220423
  Serious: Yes (Hospitalization, Other)
  Sender: FDA-Public Use
  Company Number: US-MALLINCKRODT PHARMACEUTICALS-T202104094

PATIENT
  Sex: Female

DRUGS (2)
  1. H.P. ACTHAR [Suspect]
     Active Substance: CORTICOTROPIN
     Indication: Nephrotic syndrome
     Dosage: 80 UNITS, 3 TIMES A WEEK
     Route: 058
     Dates: start: 20200428
  2. H.P. ACTHAR [Suspect]
     Active Substance: CORTICOTROPIN
     Indication: Type 2 diabetes mellitus

REACTIONS (9)
  - Cerebrovascular accident [Unknown]
  - Seizure [Unknown]
  - Diabetes mellitus [Unknown]
  - SARS-CoV-2 test positive [Unknown]
  - Cognitive disorder [Unknown]
  - Blood glucose decreased [Unknown]
  - Swelling face [Recovering/Resolving]
  - Weight increased [Recovering/Resolving]
  - Product dose omission issue [Recovered/Resolved]

NARRATIVE: CASE EVENT DATE: 20200101
